FAERS Safety Report 21037650 (Version 1)
Quarter: 2022Q3

REPORT INFORMATION
  Report Type: Spontaneous
  Country: US (occurrence: US)
  Receive Date: 20220704
  Receipt Date: 20220704
  Transmission Date: 20221027
  Serious: No
  Sender: FDA-Public Use
  Company Number: US-ALM-HQ-US-2022-1200

PATIENT
  Sex: Male

DRUGS (1)
  1. KLISYRI [Suspect]
     Active Substance: TIRBANIBULIN
     Indication: Actinic keratosis
     Dates: start: 20220606, end: 20220611

REACTIONS (4)
  - Application site erythema [Recovering/Resolving]
  - Application site scab [Recovering/Resolving]
  - Headache [Unknown]
  - Drug ineffective [Unknown]
